FAERS Safety Report 15790644 (Version 1)
Quarter: 2019Q1

REPORT INFORMATION
  Report Type: Report from Study
  Country: US (occurrence: US)
  Receive Date: 20190104
  Receipt Date: 20190104
  Transmission Date: 20190417
  Serious: Yes (Hospitalization)
  Sender: FDA-Public Use
  Company Number: US-TESAROUBC-US-2018TSO04554

PATIENT
  Age: 79 Year
  Sex: Male
  Weight: 104.8 kg

DRUGS (17)
  1. TSR-042 [Suspect]
     Active Substance: DOSTARLIMAB
     Indication: NEOPLASM MALIGNANT
     Dosage: 500 MG, UNK
     Route: 042
     Dates: start: 20180829, end: 20180829
  2. CALCIUM CARBONATE AND VITAMIN D [Concomitant]
     Active Substance: CALCIUM CARBONATE\VITAMIN D
     Indication: PRODUCT USED FOR UNKNOWN INDICATION
     Dosage: 1.500 MG, UNK
  3. LUPRON [Concomitant]
     Active Substance: LEUPROLIDE ACETATE
     Indication: PRODUCT USED FOR UNKNOWN INDICATION
     Dosage: 45 MG, UNK
  4. LUTEIN-ZEAXANTHIN [Concomitant]
     Indication: PRODUCT USED FOR UNKNOWN INDICATION
  5. DOCUSATE SODIUM AND SENNA [Concomitant]
     Active Substance: DOCUSATE SODIUM\SENNOSIDES
     Indication: PRODUCT USED FOR UNKNOWN INDICATION
     Dosage: 8.650 UNK, UNK
  6. NIRAPARIB [Suspect]
     Active Substance: NIRAPARIB
     Indication: NEOPLASM MALIGNANT
     Dosage: 200 MG, UNK
     Route: 048
     Dates: start: 20180909, end: 20180919
  7. ONE-A-DAY [Concomitant]
     Active Substance: VITAMINS
     Indication: PRODUCT USED FOR UNKNOWN INDICATION
     Dosage: UNK DF, UNK
  8. ULTRAM [Concomitant]
     Active Substance: TRAMADOL HYDROCHLORIDE
     Indication: PAIN
     Dosage: 1 DF, Q4H AS NEEDED
  9. TSR-042 [Suspect]
     Active Substance: DOSTARLIMAB
     Dosage: 500 MG, UNK
     Route: 042
     Dates: start: 20180502, end: 20180502
  10. TSR-042 [Suspect]
     Active Substance: DOSTARLIMAB
     Dosage: UNK
     Dates: end: 20180919
  11. NIRAPARIB [Suspect]
     Active Substance: NIRAPARIB
     Dosage: 300 MG, UNK
     Route: 048
     Dates: start: 20180502
  12. CHOLECALCIFEROL [Concomitant]
     Active Substance: CHOLECALCIFEROL
     Dosage: 1000 UNIT TABLET
  13. HYCODAN [Concomitant]
     Active Substance: HOMATROPINE METHYLBROMIDE\HYDROCODONE BITARTRATE
     Indication: PRODUCT USED FOR UNKNOWN INDICATION
     Dosage: 5-1.5 MG /5ML SYRUP
  14. IBUPROFEN. [Concomitant]
     Active Substance: IBUPROFEN
     Indication: PRODUCT USED FOR UNKNOWN INDICATION
     Dosage: 600 MG, UNK
  15. KLOR-CON [Concomitant]
     Active Substance: POTASSIUM CHLORIDE
     Indication: PRODUCT USED FOR UNKNOWN INDICATION
     Dosage: 20 MEQ, UNK
     Route: 048
  16. TSR-042 [Suspect]
     Active Substance: DOSTARLIMAB
     Dosage: UNK
  17. AMLODIPINE [Concomitant]
     Active Substance: AMLODIPINE BESYLATE
     Indication: PRODUCT USED FOR UNKNOWN INDICATION
     Dosage: 10 MG, UNK

REACTIONS (1)
  - Pneumonitis [Not Recovered/Not Resolved]

NARRATIVE: CASE EVENT DATE: 20180911
